FAERS Safety Report 6865747-6 (Version None)
Quarter: 2010Q3

REPORT INFORMATION
  Report Type: 
  Country: None (occurrence: None)
  Receive Date: 20100721
  Receipt Date: 20080519
  Transmission Date: 20110219
  Serious: Yes (Other)
  Sender: FDA-Public Use
  Company Number: US-PFIZER INC-2008037315

PATIENT
  Sex: Male
  Weight: 88.9 kg

DRUGS (37)
  1. CHANTIX [Suspect]
     Indication: SMOKING CESSATION THERAPY
     Dates: start: 20080404, end: 20080425
  2. GLUCOPHAGE [Concomitant]
  3. GLUCOTROL [Concomitant]
  4. LANTUS [Concomitant]
  5. HUMALOG [Concomitant]
  6. LASIX [Concomitant]
  7. ISOSORBIDE DINITRATE [Concomitant]
  8. ISOSORBIDE DINITRATE [Concomitant]
  9. PRAVACHOL [Concomitant]
  10. PRAVACHOL [Concomitant]
  11. ZETIA [Concomitant]
  12. ZETIA [Concomitant]
  13. ACETYLSALICYLIC ACID [Concomitant]
  14. ACETYLSALICYLIC ACID [Concomitant]
  15. ZESTRIL [Concomitant]
  16. ZESTRIL [Concomitant]
  17. TRICOR [Concomitant]
  18. TRICOR [Concomitant]
  19. ALBUTEROL [Concomitant]
  20. ALBUTEROL [Concomitant]
  21. SEREVENT [Concomitant]
  22. SEREVENT [Concomitant]
  23. FLOVENT [Concomitant]
  24. FLOVENT [Concomitant]
  25. MONTELUKAST [Concomitant]
  26. MONTELUKAST [Concomitant]
  27. REQUIP [Concomitant]
  28. REQUIP [Concomitant]
  29. GABITRIL [Concomitant]
  30. GABITRIL [Concomitant]
  31. FIORICET [Concomitant]
  32. FIORICET [Concomitant]
  33. MORPHINE [Concomitant]
  34. BACLOFEN [Concomitant]
  35. BENADRYL [Concomitant]
  36. NEXIUM [Concomitant]
  37. LEVOXYL [Concomitant]

REACTIONS (7)
  - ABDOMINAL DISTENSION [None]
  - ABNORMAL DREAMS [None]
  - CHEST PAIN [None]
  - CONSTIPATION [None]
  - DYSPNOEA [None]
  - MUSCLE SPASMS [None]
  - SOMNOLENCE [None]
